FAERS Safety Report 7900836-6 (Version None)
Quarter: 2011Q4

REPORT INFORMATION
  Report Type: 
  Country: None (occurrence: None)
  Receive Date: 20111108
  Receipt Date: 20111108
  Transmission Date: 20120403
  Serious: Yes (Death, Life-Threatening, Hospitalization, Disabling, Congenital Anomaly, Other)
  Sender: FDA-Public Use
  Company Number: None

PATIENT
  Age: 42 Year
  Sex: Male
  Weight: 62.142 kg

DRUGS (1)
  1. ZEVALIN [Suspect]
     Indication: NON-HODGKIN'S LYMPHOMA

REACTIONS (1)
  - CREUTZFELDT-JAKOB DISEASE [None]
